FAERS Safety Report 5303148-2 (Version None)
Quarter: 2007Q2

REPORT INFORMATION
  Report Type: 
  Country: None (occurrence: None)
  Receive Date: 20070420
  Receipt Date: 20070410
  Transmission Date: 20071010
  Serious: Yes (Other)
  Sender: FDA-Public Use
  Company Number: PHEH2006US02475

PATIENT
  Age: 66 Year
  Sex: Female

DRUGS (1)
  1. FEMARA [Suspect]
     Indication: BREAST CANCER
     Dosage: 2.5 MG, QD
     Route: 048
     Dates: start: 20050301

REACTIONS (7)
  - ABDOMINAL DISTENSION [None]
  - BREAST CANCER RECURRENT [None]
  - CONDITION AGGRAVATED [None]
  - FATIGUE [None]
  - OVARIAN CANCER [None]
  - TUMOUR MARKER INCREASED [None]
  - UTERINE LEIOMYOMA [None]
